FAERS Safety Report 15400685 (Version 1)
Quarter: 2018Q3

REPORT INFORMATION
  Report Type: Spontaneous
  Country: US (occurrence: US)
  Receive Date: 20180919
  Receipt Date: 20180919
  Transmission Date: 20181010
  Serious: Yes (Life-Threatening, Hospitalization)
  Sender: FDA-Public Use
  Company Number: US-ACCORD-071852

PATIENT
  Age: 70 Year
  Sex: Female

DRUGS (2)
  1. OXALIPLATIN. [Suspect]
     Active Substance: OXALIPLATIN
     Indication: COLORECTAL CANCER STAGE III
     Dosage: 4 CYCLES OF CAPEOX AT LABELED DOSE (1500 MG BID BASED ON BSA AT START OF THERAPY)
  2. CAPECITABINE. [Suspect]
     Active Substance: CAPECITABINE
     Indication: COLORECTAL CANCER STAGE III
     Dosage: 4 CYCLES OF CAPEOX AT LABELED DOSE (1500 MG BID BASED ON BSA AT START OF THERAPY)

REACTIONS (6)
  - Nausea [Unknown]
  - Vomiting [Unknown]
  - Dehydration [Unknown]
  - Weight decreased [Unknown]
  - Clostridium difficile infection [Recovering/Resolving]
  - Diarrhoea [Recovering/Resolving]
